FAERS Safety Report 7275173-6 (Version None)
Quarter: 2011Q1

REPORT INFORMATION
  Report Type: 
  Country: None (occurrence: None)
  Receive Date: 20110204
  Receipt Date: 20110128
  Transmission Date: 20110831
  Serious: Yes (Hospitalization)
  Sender: FDA-Public Use
  Company Number: US-AMGEN-USASP2011005367

PATIENT
  Age: 52 Year
  Sex: Female

DRUGS (3)
  1. ENBREL [Suspect]
     Indication: PSORIATIC ARTHROPATHY
  2. ENBREL [Suspect]
     Indication: ANKYLOSING SPONDYLITIS
     Dosage: 50 MG, QWK
     Dates: start: 20100101
  3. ENBREL [Suspect]
     Indication: PSORIASIS

REACTIONS (15)
  - APHTHOUS STOMATITIS [None]
  - INJECTION SITE PAIN [None]
  - INJECTION SITE SWELLING [None]
  - GOITRE [None]
  - PSORIATIC ARTHROPATHY [None]
  - INJECTION SITE PRURITUS [None]
  - MASS [None]
  - WEIGHT INCREASED [None]
  - PETECHIAE [None]
  - HAEMORRHOIDS [None]
  - PRECANCEROUS CELLS PRESENT [None]
  - LICHEN PLANUS [None]
  - DIARRHOEA [None]
  - INJECTION SITE URTICARIA [None]
  - INJECTION SITE ERYTHEMA [None]
